FAERS Safety Report 18183642 (Version 1)
Quarter: 2020Q3

REPORT INFORMATION
  Report Type: Spontaneous
  Country: DE (occurrence: DE)
  Receive Date: 20200822
  Receipt Date: 20200822
  Transmission Date: 20201103
  Serious: Yes (Other)
  Sender: FDA-Public Use
  Company Number: NVSC2020DE229713

PATIENT
  Age: 26 Year
  Sex: Male

DRUGS (4)
  1. TEMOZOLOMIDE. [Concomitant]
     Active Substance: TEMOZOLOMIDE
     Indication: ANAPLASTIC ASTROCYTOMA
     Dosage: 500 MG, QD
     Route: 065
  2. DEXAMETHASONE. [Suspect]
     Active Substance: DEXAMETHASONE
     Indication: ANAPLASTIC ASTROCYTOMA
     Dosage: 4?16 MG DAILY
     Route: 065
  3. HYDROXYCARBAMIDE [Suspect]
     Active Substance: HYDROXYUREA
     Indication: ANAPLASTIC ASTROCYTOMA
     Dosage: 500 MG
     Route: 048
  4. BEVACIZUMAB. [Suspect]
     Active Substance: BEVACIZUMAB
     Indication: ANAPLASTIC ASTROCYTOMA
     Dosage: 10 MG/KG, Q2W
     Route: 065

REACTIONS (4)
  - Ulcer [Unknown]
  - Skin necrosis [Unknown]
  - Product use in unapproved indication [Unknown]
  - Skin striae [Unknown]
